FAERS Safety Report 6821672-8 (Version None)
Quarter: 2010Q3

REPORT INFORMATION
  Report Type: 
  Country: None (occurrence: None)
  Receive Date: 20100707
  Receipt Date: 20090501
  Transmission Date: 20110219
  Serious: No
  Sender: FDA-Public Use
  Company Number: US-PFIZER INC-2009206790

PATIENT
  Sex: Female
  Weight: 90.703 kg

DRUGS (2)
  1. ZOLOFT [Suspect]
     Indication: DEPRESSION
     Dosage: 50 MG, 1X/DAY
     Dates: start: 20090430
  2. KLONOPIN [Concomitant]
     Dosage: UNK

REACTIONS (5)
  - ANXIETY [None]
  - DIZZINESS [None]
  - HYPERSOMNIA [None]
  - MYDRIASIS [None]
  - TREMOR [None]
